FAERS Safety Report 4399541-5 (Version None)
Quarter: 2004Q3

REPORT INFORMATION
  Report Type: 
  Country: None (occurrence: None)
  Receive Date: 20040716
  Receipt Date: 20040206
  Transmission Date: 20050211
  Serious: Yes (Death)
  Sender: FDA-Public Use
  Company Number: GB-GLAXOSMITHKLINE-B0322547A

PATIENT
  Age: 78 Year
  Sex: Female

DRUGS (4)
  1. LITHIUM [Suspect]
     Indication: DEPRESSION
     Route: 048
     Dates: start: 20020630, end: 20020730
  2. LITHIUM [Suspect]
     Dates: start: 19760630, end: 19971216
  3. THYROXINE [Concomitant]
     Indication: HYPOTHYROIDISM
     Dosage: 100MCG PER DAY
     Route: 048
     Dates: start: 19790627, end: 20030803
  4. OLANZAPINE [Concomitant]
     Dosage: 2.5MG PER DAY
     Route: 048
     Dates: start: 20020616, end: 20030803

REACTIONS (3)
  - PYELONEPHRITIS [None]
  - RENAL FAILURE [None]
  - RENAL IMPAIRMENT [None]
